FAERS Safety Report 24837433 (Version 1)
Quarter: 2025Q1

REPORT INFORMATION
  Report Type: Spontaneous
  Country: SE (occurrence: None)
  Receive Date: 20250112
  Receipt Date: 20250112
  Transmission Date: 20250408
  Serious: Yes (Disabling, Other)
  Sender: FDA-CTU
  Company Number: None

PATIENT
  Sex: Female

DRUGS (3)
  1. ESCITALOPRAM [Suspect]
     Active Substance: ESCITALOPRAM OXALATE
     Indication: Depression
     Dosage: 1 TABLET DAILY ORAL
     Route: 048
     Dates: end: 20201015
  2. ESCITALOPRAM [Suspect]
     Active Substance: ESCITALOPRAM OXALATE
     Indication: Anxiety
  3. SERTRALINE HYDROCHLORIDE [Suspect]
     Active Substance: SERTRALINE HYDROCHLORIDE
     Indication: Depression
     Dosage: 1 TABLET DAILY ORAL
     Route: 048
     Dates: end: 20200420

REACTIONS (69)
  - Yawning [None]
  - Headache [None]
  - Nonspecific reaction [None]
  - Somnolence [None]
  - Abnormal dreams [None]
  - Night sweats [None]
  - Cognitive disorder [None]
  - Muscle tightness [None]
  - Sexual dysfunction [None]
  - Head discomfort [None]
  - Anger [None]
  - Irritability [None]
  - Asthenopia [None]
  - Aphasia [None]
  - Speech disorder [None]
  - Dysgraphia [None]
  - Bruxism [None]
  - Bruxism [None]
  - Withdrawal syndrome [None]
  - Fatigue [None]
  - Ocular discomfort [None]
  - Eye pain [None]
  - Dizziness [None]
  - Nausea [None]
  - Tongue pruritus [None]
  - Head discomfort [None]
  - Anxiety [None]
  - Illness [None]
  - Photophobia [None]
  - Oversensing [None]
  - Tooth injury [None]
  - Tooth disorder [None]
  - Tongue discomfort [None]
  - Emotional disorder [None]
  - Lack of empathy [None]
  - Anhedonia [None]
  - Disturbance in attention [None]
  - Brain fog [None]
  - Decreased appetite [None]
  - Gastrointestinal disorder [None]
  - Hypoacusis [None]
  - Parosmia [None]
  - Ageusia [None]
  - Hypoaesthesia [None]
  - Constipation [None]
  - Bladder disorder [None]
  - Memory impairment [None]
  - Mental disorder [None]
  - Dry eye [None]
  - Crying [None]
  - Hypohidrosis [None]
  - Malaise [None]
  - Apathy [None]
  - Indifference [None]
  - Depersonalisation/derealisation disorder [None]
  - Derealisation [None]
  - Weight increased [None]
  - Feeling abnormal [None]
  - Dysphonia [None]
  - Sexual dysfunction [None]
  - Loss of libido [None]
  - Genital disorder [None]
  - Vaginal disorder [None]
  - Dyspareunia [None]
  - Vulvovaginal dryness [None]
  - Vaginal discharge [None]
  - Anorgasmia [None]
  - Anorgasmia [None]
  - Disturbance in sexual arousal [None]
